FAERS Safety Report 14832608 (Version 7)
Quarter: 2022Q2

REPORT INFORMATION
  Report Type: Spontaneous
  Country: US (occurrence: US)
  Receive Date: 20180501
  Receipt Date: 20220425
  Transmission Date: 20220721
  Serious: Yes (Other)
  Sender: FDA-Public Use
  Company Number: US-GLAXOSMITHKLINE-US2018GSK076011

PATIENT
  Age: 58 Year
  Sex: Male

DRUGS (7)
  1. PREVACID 24 HR [Suspect]
     Active Substance: LANSOPRAZOLE
     Indication: Product used for unknown indication
     Dosage: UNK
     Route: 048
  2. PREVACID [Suspect]
     Active Substance: LANSOPRAZOLE
     Indication: Gastrooesophageal reflux disease
     Dosage: 15 MG, QD
     Route: 065
     Dates: start: 20050913, end: 20110121
  3. PREVACID [Suspect]
     Active Substance: LANSOPRAZOLE
     Dosage: 30 MG, QD
     Route: 065
  4. LANSOPRAZOLE [Suspect]
     Active Substance: LANSOPRAZOLE
     Indication: Gastrooesophageal reflux disease
     Dosage: 15 MG, QD
     Route: 048
     Dates: start: 201306
  5. PANTOPRAZOLE [Suspect]
     Active Substance: PANTOPRAZOLE
     Indication: Product used for unknown indication
     Dosage: 40 MG, QD
     Route: 048
  6. DEXILANT [Suspect]
     Active Substance: DEXLANSOPRAZOLE
     Indication: Gastrooesophageal reflux disease
     Dosage: 60 MG, QD
     Route: 065
     Dates: start: 20110121
  7. DEXILANT [Suspect]
     Active Substance: DEXLANSOPRAZOLE
     Indication: Product used for unknown indication
     Dosage: 60 MG, QD
     Route: 048

REACTIONS (19)
  - Tubulointerstitial nephritis [Not Recovered/Not Resolved]
  - Acute kidney injury [Not Recovered/Not Resolved]
  - End stage renal disease [Unknown]
  - Haemodialysis [Not Recovered/Not Resolved]
  - Chronic kidney disease [Not Recovered/Not Resolved]
  - Glomerulonephritis minimal lesion [Not Recovered/Not Resolved]
  - Nephrotic syndrome [Recovering/Resolving]
  - Renal failure [Unknown]
  - Renal impairment [Recovered/Resolved]
  - Glomerulonephritis [Unknown]
  - Glomerulonephritis membranous [Unknown]
  - Renal vein thrombosis [Unknown]
  - Dialysis [Unknown]
  - Proteinuria [Unknown]
  - Urine abnormality [Unknown]
  - Nephropathy [Unknown]
  - Renal cyst [Unknown]
  - Haematuria [Unknown]
  - Glomerulonephritis minimal lesion [Not Recovered/Not Resolved]

NARRATIVE: CASE EVENT DATE: 20101226
